FAERS Safety Report 4543788-1 (Version None)
Quarter: 2005Q1

REPORT INFORMATION
  Report Type: 
  Country: None (occurrence: None)
  Receive Date: 20050103
  Receipt Date: 20041215
  Transmission Date: 20050727
  Serious: Yes (Hospitalization)
  Sender: FDA-Public Use
  Company Number: JP-MERCK-0412USA02369

PATIENT
  Age: 38 Year
  Sex: Female

DRUGS (1)
  1. METHYLDOPA [Suspect]
     Indication: HYPERTENSION
     Route: 048
     Dates: start: 19981101, end: 19990207

REACTIONS (1)
  - AUTOIMMUNE HEPATITIS [None]
